FAERS Safety Report 5938682-5 (Version None)
Quarter: 2008Q4

REPORT INFORMATION
  Report Type: 
  Country: None (occurrence: None)
  Receive Date: 20081103
  Receipt Date: 20081027
  Transmission Date: 20090506
  Serious: Yes (Hospitalization, Disabling, Other)
  Sender: FDA-Public Use
  Company Number: US-MERCK-0805USA01250

PATIENT
  Age: 53 Year
  Sex: Female

DRUGS (2)
  1. FOSAMAX [Suspect]
     Indication: OSTEOPOROSIS
     Route: 048
     Dates: start: 20010322, end: 20060816
  2. FOSAMAX [Suspect]
     Indication: OSTEOPENIA
     Route: 048
     Dates: start: 20010322, end: 20060816

REACTIONS (14)
  - ADVERSE EVENT [None]
  - ANXIETY [None]
  - ARTHROPATHY [None]
  - CATARACT [None]
  - DEPRESSION [None]
  - FALL [None]
  - INSOMNIA [None]
  - LIMB INJURY [None]
  - MIGRAINE [None]
  - OSTEOARTHRITIS [None]
  - OSTEOMYELITIS [None]
  - OSTEONECROSIS [None]
  - SCIATICA [None]
  - TEMPOROMANDIBULAR JOINT SYNDROME [None]
